FAERS Safety Report 7506336-X (Version None)
Quarter: 2011Q2

REPORT INFORMATION
  Report Type: 
  Country: None (occurrence: None)
  Receive Date: 20110526
  Receipt Date: 20110208
  Transmission Date: 20111010
  Serious: No
  Sender: FDA-Public Use
  Company Number: US-ABBOTT-11P-163-0704858-00

PATIENT
  Age: 80 Year
  Sex: Female
  Weight: 104.42 kg

DRUGS (9)
  1. LOVASTATIN [Concomitant]
     Indication: BLOOD CHOLESTEROL INCREASED
  2. ASPIRIN [Concomitant]
     Indication: PRODUCT USED FOR UNKNOWN INDICATION
  3. HYDROCHLOROTHIAZIDE [Concomitant]
     Indication: HYPERTENSION
  4. DIOVAN HCT [Concomitant]
     Indication: HYPERTENSION
  5. METFORMIN HCL [Concomitant]
     Indication: TYPE 2 DIABETES MELLITUS
  6. JANUVIA [Concomitant]
     Indication: TYPE 2 DIABETES MELLITUS
  7. GLYBURIDE [Concomitant]
     Indication: TYPE 2 DIABETES MELLITUS
  8. ZEMPLAR [Suspect]
     Indication: VITAMIN D DECREASED
     Dosage: AT HOUR OF SLEEP
     Route: 048
     Dates: start: 20101203, end: 20110206
  9. ATENOLOL [Concomitant]
     Indication: HYPERTENSION

REACTIONS (8)
  - ASTHENIA [None]
  - HALLUCINATION [None]
  - INSOMNIA [None]
  - HALLUCINATION, AUDITORY [None]
  - RASH [None]
  - BONE PAIN [None]
  - FATIGUE [None]
  - ABNORMAL BEHAVIOUR [None]
